FAERS Safety Report 5763383-6 (Version None)
Quarter: 2008Q2

REPORT INFORMATION
  Report Type: 
  Country: None (occurrence: None)
  Receive Date: 20080609
  Receipt Date: 20080606
  Transmission Date: 20081010
  Serious: Yes (Death, Hospitalization)
  Sender: FDA-Public Use
  Company Number: JP-BOEHRINGER INGELHEIM GMBH, GERMANY-2008-BP-08574NB

PATIENT
  Sex: Male
  Weight: 42 kg

DRUGS (3)
  1. MICARDIS [Suspect]
     Indication: HYPERTENSION
     Route: 048
     Dates: start: 20060616
  2. LASIX [Concomitant]
     Route: 048
     Dates: start: 20060616, end: 20070910
  3. EPADEL [Concomitant]
     Route: 048
     Dates: start: 20070616, end: 20070910

REACTIONS (1)
  - BRONCHOPNEUMONIA [None]
